FAERS Safety Report 12528243 (Version 1)
Quarter: 2016Q3

REPORT INFORMATION
  Report Type: Spontaneous
  Country: US (occurrence: US)
  Receive Date: 20160705
  Receipt Date: 20160705
  Transmission Date: 20161109
  Serious: Yes (Other)
  Sender: FDA-Public Use
  Company Number: US-BAYER-2016-101143

PATIENT
  Age: 63 Year
  Sex: Female
  Weight: 147.39 kg

DRUGS (3)
  1. EOVIST [Suspect]
     Active Substance: GADOXETATE DISODIUM
     Indication: NUCLEAR MAGNETIC RESONANCE IMAGING
     Dosage: 15 ML, ONCE
     Route: 042
     Dates: start: 20160524, end: 20160524
  2. EOVIST [Suspect]
     Active Substance: GADOXETATE DISODIUM
     Indication: ULTRASOUND ABDOMEN ABNORMAL
  3. EOVIST [Suspect]
     Active Substance: GADOXETATE DISODIUM
     Indication: HEPATIC LESION

REACTIONS (5)
  - Dyspnoea [Recovered/Resolved]
  - Palpitations [Recovered/Resolved]
  - Feeling abnormal [Recovered/Resolved]
  - Chest discomfort [Recovered/Resolved]
  - Cardiac flutter [Recovered/Resolved]

NARRATIVE: CASE EVENT DATE: 20160524
